FAERS Safety Report 7763324-6 (Version None)
Quarter: 2011Q3

REPORT INFORMATION
  Report Type: 
  Country: None (occurrence: None)
  Receive Date: 20110920
  Receipt Date: 20110916
  Transmission Date: 20111222
  Serious: Yes (Death)
  Sender: FDA-Public Use
  Company Number: IT-ASTRAZENECA-2011SE53180

PATIENT
  Age: 30 Year
  Sex: Male
  Weight: 150 kg

DRUGS (5)
  1. TRANQUIRT [Concomitant]
     Dosage: 0.5% ORAL DROPS, SOLUTION 20 ML FLACON
     Route: 048
  2. LORAZEPAM [Concomitant]
     Dosage: 40 DROPS + 50 DROPS PER DAY
     Route: 048
  3. NEBIVOLOL HCL [Concomitant]
     Route: 048
  4. SEROQUEL [Suspect]
     Dosage: 200 MG+300 MG/DAY
     Route: 048
     Dates: start: 20101201, end: 20110901
  5. AKINETON [Concomitant]
     Route: 048

REACTIONS (1)
  - SUDDEN DEATH [None]
